FAERS Safety Report 7472245-8 (Version None)
Quarter: 2011Q1

REPORT INFORMATION
  Report Type: 
  Country: None (occurrence: None)
  Receive Date: 20110302
  Receipt Date: 20100628
  Transmission Date: 20110831
  Serious: Yes (Other)
  Sender: FDA-Public Use
  Company Number: 163-21880-10081282

PATIENT
  Age: 74 Year
  Sex: Female

DRUGS (3)
  1. REVLIMID [Suspect]
     Indication: MULTIPLE MYELOMA
     Dosage: 15 MG, DAILY ON DAYS 1-14 AS DIRECTED, PO
     Route: 048
     Dates: start: 20100513
  2. PHENERGAN HCL [Concomitant]
  3. VICODIN [Concomitant]

REACTIONS (2)
  - UPPER LIMB FRACTURE [None]
  - FALL [None]
